FAERS Safety Report 11320327 (Version 2)
Quarter: 2015Q3

REPORT INFORMATION
  Report Type: Spontaneous
  Country: US (occurrence: US)
  Receive Date: 20150729
  Receipt Date: 20150911
  Transmission Date: 20151125
  Serious: No
  Sender: FDA-Public Use
  Company Number: US-009507513-1507USA001613

PATIENT
  Age: 34 Year
  Sex: Female
  Weight: 75.28 kg

DRUGS (2)
  1. NEXPLANON [Suspect]
     Active Substance: ETONOGESTREL
     Dosage: UNK
     Route: 058
     Dates: start: 20150702
  2. NEXPLANON [Suspect]
     Active Substance: ETONOGESTREL
     Indication: CONTRACEPTION
     Dosage: UNK, IN THE ARM
     Route: 058
     Dates: start: 20130814, end: 20150702

REACTIONS (6)
  - Menometrorrhagia [Recovered/Resolved]
  - Device deployment issue [Recovered/Resolved]
  - Dysmenorrhoea [Unknown]
  - Medical device complication [Recovered/Resolved]
  - Device breakage [Recovered/Resolved]
  - Device dislocation [Recovered/Resolved]

NARRATIVE: CASE EVENT DATE: 20130814
